FAERS Safety Report 4462038-8 (Version None)
Quarter: 2004Q3

REPORT INFORMATION
  Report Type: 
  Country: None (occurrence: None)
  Receive Date: 20040927
  Receipt Date: 20040927
  Transmission Date: 20050211
  Serious: Yes (Other)
  Sender: FDA-Public Use
  Company Number: None

PATIENT
  Age: 32 Year
  Sex: Female
  Weight: 49.8957 kg

DRUGS (1)
  1. YASMIN [Suspect]
     Indication: POLYCYSTIC OVARIES
     Dosage: DAILY
     Dates: start: 20040610, end: 20040924

REACTIONS (3)
  - INSOMNIA [None]
  - PSYCHOTIC DISORDER [None]
  - THINKING ABNORMAL [None]
